FAERS Safety Report 8078835-6 (Version None)
Quarter: 2012Q1

REPORT INFORMATION
  Report Type: 
  Country: None (occurrence: None)
  Receive Date: 20120124
  Receipt Date: 20120109
  Transmission Date: 20120608
  Serious: Yes (Death)
  Sender: FDA-Public Use
  Company Number: JPI-P-004054

PATIENT
  Age: 35 Year
  Sex: Female

DRUGS (6)
  1. UNSPECIFIED MEDICATIONS INCLUDING NARCOTICS AND PSYCHODYSLEPTICS [Suspect]
     Indication: PRODUCT USED FOR UNKNOWN INDICATION
     Dates: end: 20080621
  2. METHADONE HCL [Suspect]
     Indication: PRODUCT USED FOR UNKNOWN INDICATION
     Dates: end: 20080621
  3. XYREM [Suspect]
     Indication: NARCOLEPSY
     Dosage: 12 GM (12 GM,1 IN 1 D),ORAL ; 8 GM (8 GM,1 IN 1 D),ORAL
     Route: 048
     Dates: end: 20080621
  4. XYREM [Suspect]
     Indication: SLEEP DISORDER
     Dosage: 12 GM (12 GM,1 IN 1 D),ORAL ; 8 GM (8 GM,1 IN 1 D),ORAL
     Route: 048
     Dates: end: 20080621
  5. XYREM [Suspect]
     Indication: NARCOLEPSY
     Dosage: 12 GM (12 GM,1 IN 1 D),ORAL ; 8 GM (8 GM,1 IN 1 D),ORAL
     Route: 048
     Dates: end: 20080621
  6. XYREM [Suspect]
     Indication: SLEEP DISORDER
     Dosage: 12 GM (12 GM,1 IN 1 D),ORAL ; 8 GM (8 GM,1 IN 1 D),ORAL
     Route: 048
     Dates: end: 20080621

REACTIONS (4)
  - MENTAL DISORDER [None]
  - MULTIPLE DRUG OVERDOSE [None]
  - ACCIDENTAL POISONING [None]
  - ABNORMAL BEHAVIOUR [None]
